FAERS Safety Report 7912699-3 (Version None)
Quarter: 2011Q4

REPORT INFORMATION
  Report Type: 
  Country: None (occurrence: None)
  Receive Date: 20111114
  Receipt Date: 20111110
  Transmission Date: 20120403
  Serious: Yes (Death)
  Sender: FDA-Public Use
  Company Number: US-BAYER-2011-087361

PATIENT
  Age: 59 Year
  Sex: Male

DRUGS (2)
  1. SORAFENIB (RAF KINASE INHIBITOR) [Suspect]
     Indication: HEPATIC CANCER METASTATIC
     Dosage: 400 MG, BID
     Route: 048
     Dates: start: 20110831, end: 20110907
  2. DOXORUBICIN HCL [Suspect]
     Indication: HEPATIC CANCER METASTATIC
     Dosage: 60 MG/M2, UNK
     Route: 042
     Dates: start: 20110831, end: 20110831

REACTIONS (1)
  - HEPATOBILIARY DISEASE [None]
